FAERS Safety Report 8355019-5 (Version None)
Quarter: 2012Q2

REPORT INFORMATION
  Report Type: 
  Country: None (occurrence: None)
  Receive Date: 20120511
  Receipt Date: 20120507
  Transmission Date: 20120825
  Serious: Yes (Other)
  Sender: FDA-Public Use
  Company Number: US-PFIZER INC-2012111699

PATIENT
  Sex: Male
  Weight: 74.83 kg

DRUGS (7)
  1. FUROSEMIDE [Concomitant]
     Dosage: UNK
  2. ROSUVASTATIN [Concomitant]
     Dosage: UNK
  3. ATENOLOL [Concomitant]
     Dosage: UNK
  4. AMBRISENTAN [Concomitant]
     Dosage: UNK
  5. OMEPRAZOLE [Concomitant]
     Dosage: UNK
  6. REVATIO [Suspect]
     Indication: PULMONARY HYPERTENSION
     Dosage: 20 MG, 3X/DAY
     Route: 048
  7. GEMFIBROZIL [Concomitant]
     Dosage: UNK

REACTIONS (3)
  - DYSARTHRIA [None]
  - CEREBROVASCULAR ACCIDENT [None]
  - SPEECH DISORDER [None]
